FAERS Safety Report 4598346-X (Version None)
Quarter: 2005Q1

REPORT INFORMATION
  Report Type: 
  Country: None (occurrence: None)
  Receive Date: 20050301
  Receipt Date: 20050301
  Transmission Date: 20050727
  Serious: Yes (Death)
  Sender: FDA-Public Use
  Company Number: None

PATIENT

DRUGS (1)
  1. REMICADE [Suspect]

REACTIONS (5)
  - DRUG EFFECT DECREASED [None]
  - PERICARDIAL EFFUSION [None]
  - PLEURAL EFFUSION [None]
  - SMALL CELL LUNG CANCER STAGE UNSPECIFIED [None]
  - UPPER RESPIRATORY TRACT INFECTION [None]
